FAERS Safety Report 14982972 (Version 1)
Quarter: 2018Q2

REPORT INFORMATION
  Report Type: Spontaneous
  Country: US (occurrence: US)
  Receive Date: 20180607
  Receipt Date: 20180607
  Transmission Date: 20180711
  Serious: No
  Sender: FDA-Public Use
  Company Number: US-GLAXOSMITHKLINE-US2018099751

PATIENT
  Sex: Female

DRUGS (4)
  1. FLOVENT [Suspect]
     Active Substance: FLUTICASONE PROPIONATE
     Indication: PRODUCT USED FOR UNKNOWN INDICATION
     Dosage: 1 PUFF(S), BID
     Dates: start: 201506
  2. FLOVENT [Suspect]
     Active Substance: FLUTICASONE PROPIONATE
     Dosage: 1 PUFF(S), BID
     Dates: start: 201506
  3. FLONASE [Concomitant]
     Active Substance: FLUTICASONE PROPIONATE
  4. ALBUTEROL. [Concomitant]
     Active Substance: ALBUTEROL

REACTIONS (3)
  - Intentional product use issue [Unknown]
  - Underdose [Unknown]
  - Expired product administered [Unknown]
